FAERS Safety Report 6671900-7 (Version None)
Quarter: 2010Q2

REPORT INFORMATION
  Report Type: 
  Country: None (occurrence: None)
  Receive Date: 20100407
  Receipt Date: 20100325
  Transmission Date: 20101027
  Serious: Yes (Other)
  Sender: FDA-Public Use
  Company Number: FR-PFIZER INC-2010036152

PATIENT
  Age: 65 Year
  Sex: Male

DRUGS (4)
  1. LYRICA [Suspect]
     Indication: NEURALGIA
     Dosage: 75 MG, 2X/DAY
     Route: 048
     Dates: end: 20100310
  2. RULID [Concomitant]
     Dosage: UNK
     Dates: start: 20100201
  3. WELLVONE [Concomitant]
     Dosage: UNK
  4. ZELITREX [Concomitant]
     Dosage: UNK
     Dates: start: 20100201

REACTIONS (4)
  - BACK PAIN [None]
  - EPISTAXIS [None]
  - INSOMNIA [None]
  - MYALGIA [None]
